FAERS Safety Report 7807945-0 (Version None)
Quarter: 2011Q4

REPORT INFORMATION
  Report Type: 
  Country: None (occurrence: None)
  Receive Date: 20111011
  Receipt Date: 20111011
  Transmission Date: 20120403
  Serious: Yes (Other)
  Sender: FDA-Public Use
  Company Number: None

PATIENT
  Age: 44 Year
  Sex: Female

DRUGS (2)
  1. PREDNISOLONE [Suspect]
     Indication: UVEITIS
     Dosage: 1 DROP
     Route: 047
  2. TROPICAMIDE [Concomitant]
     Dates: start: 20111005, end: 20111006

REACTIONS (4)
  - DRUG DISPENSING ERROR [None]
  - VISION BLURRED [None]
  - MEDICATION ERROR [None]
  - WRONG DRUG ADMINISTERED [None]
